FAERS Safety Report 7238149-0 (Version None)
Quarter: 2011Q1

REPORT INFORMATION
  Report Type: 
  Country: None (occurrence: None)
  Receive Date: 20110121
  Receipt Date: 20110117
  Transmission Date: 20110831
  Serious: Yes (Hospitalization)
  Sender: FDA-Public Use
  Company Number: IE-SANOFI-AVENTIS-2011SA000397

PATIENT
  Age: 74 Year
  Sex: Male

DRUGS (13)
  1. DETRUSITOL [Concomitant]
     Route: 065
  2. SEPTRIN [Concomitant]
     Route: 065
  3. MOVICOL [Concomitant]
     Route: 065
  4. PREDNISONE [Suspect]
     Indication: PROSTATE CANCER
     Route: 048
     Dates: start: 20101213
  5. PERINDOPRIL [Concomitant]
     Route: 065
  6. ZOMETA [Concomitant]
     Route: 065
  7. TRAMADOL [Concomitant]
     Route: 065
     Dates: end: 20101221
  8. NEXIUM [Concomitant]
     Route: 065
     Dates: start: 20101201
  9. BLINDED THERAPY [Suspect]
     Indication: PROSTATE CANCER
     Route: 048
     Dates: start: 20101213
  10. ALLOPURINOL [Concomitant]
     Route: 065
  11. ZOLADEX [Concomitant]
     Route: 065
  12. TAXOTERE [Suspect]
     Indication: PROSTATE CANCER
     Route: 041
     Dates: start: 20101213, end: 20101213
  13. MACROGOL [Concomitant]
     Route: 065

REACTIONS (9)
  - HYPOCALCAEMIA [None]
  - FATIGUE [None]
  - DIARRHOEA [None]
  - OEDEMA [None]
  - HYPOMAGNESAEMIA [None]
  - CONFUSIONAL STATE [None]
  - NAUSEA [None]
  - OEDEMA PERIPHERAL [None]
  - MUSCULOSKELETAL PAIN [None]
